FAERS Safety Report 10075965 (Version 1)
Quarter: 2014Q2

REPORT INFORMATION
  Report Type: Spontaneous
  Country: US (occurrence: None)
  Receive Date: 20140411
  Receipt Date: 20140411
  Transmission Date: 20141212
  Serious: Yes (Death, Hospitalization, Other)
  Sender: FDA-Public Use
  Company Number: None

PATIENT
  Age: 75 Year
  Sex: Male
  Weight: 165.56 kg

DRUGS (2)
  1. CEFEPIME [Suspect]
  2. FENTANYL [Suspect]

REACTIONS (12)
  - Deep vein thrombosis [None]
  - Haematuria [None]
  - Weight increased [None]
  - Personality change [None]
  - Hyperhidrosis [None]
  - Myalgia [None]
  - Chills [None]
  - Renal failure acute [None]
  - Diarrhoea [None]
  - Dyspnoea [None]
  - Lymphadenopathy [None]
  - Somnolence [None]
